FAERS Safety Report 15574993 (Version 1)
Quarter: 2018Q4

REPORT INFORMATION
  Report Type: Spontaneous
  Country: US (occurrence: US)
  Receive Date: 20181101
  Receipt Date: 20181101
  Transmission Date: 20190205
  Serious: Yes (Hospitalization)
  Sender: FDA-Public Use
  Company Number: None

PATIENT
  Age: 60 Year
  Sex: Female

DRUGS (7)
  1. XGEVA [Concomitant]
     Active Substance: DENOSUMAB
  2. IMODIUM A-D [Concomitant]
     Active Substance: LOPERAMIDE HYDROCHLORIDE
  3. LETROZOLE. [Concomitant]
     Active Substance: LETROZOLE
  4. PROTONIX [Concomitant]
     Active Substance: PANTOPRAZOLE SODIUM
  5. IBRANCE [Suspect]
     Active Substance: PALBOCICLIB
     Indication: BREAST CANCER
     Dosage: ?          OTHER FREQUENCY:QD21/28 DAYS;?
     Route: 048
     Dates: start: 20171115
  6. PERJETA [Concomitant]
     Active Substance: PERTUZUMAB
  7. HERCEPTIN [Concomitant]
     Active Substance: TRASTUZUMAB

REACTIONS (1)
  - Hospitalisation [None]

NARRATIVE: CASE EVENT DATE: 20181001
